FAERS Safety Report 6503695-1 (Version None)
Quarter: 2009Q4

REPORT INFORMATION
  Report Type: 
  Country: None (occurrence: None)
  Receive Date: 20091217
  Receipt Date: 20091207
  Transmission Date: 20100525
  Serious: Yes (Disabling, Other)
  Sender: FDA-Public Use
  Company Number: PHEH2009US09095

PATIENT
  Sex: Female
  Weight: 106.35 kg

DRUGS (17)
  1. MIACALCIN [Suspect]
     Indication: OSTEOPENIA
     Dosage: 200 UNITS/SPRAY
     Route: 045
     Dates: start: 20070101, end: 20081201
  2. CALCITONIN SALMON [Suspect]
     Indication: OSTEOPENIA
     Dosage: 200 UNITS/SPRAY
     Route: 045
     Dates: start: 20090101, end: 20090601
  3. VESICARE [Concomitant]
     Indication: URINARY INCONTINENCE
     Dosage: 5 MG, QD
  4. VIVELLE-DOT [Concomitant]
     Indication: HORMONE REPLACEMENT THERAPY
     Dosage: 0.05 MG/24 HR
  5. GLUCOSAMINE W/CHONDROITIN [Concomitant]
     Dosage: 1200-1500 MG QD IN DIVIDED DOSES
     Route: 048
  6. HERBAL LAXATIVE [Concomitant]
     Dosage: UNK, QHS
     Route: 048
  7. MULTI-VITAMINS [Concomitant]
     Dosage: UNK, QD
     Route: 048
  8. LOVAZA [Concomitant]
     Dosage: UNK, QD
     Route: 048
  9. ASCORBIC ACID [Concomitant]
     Dosage: TWO 1000 MG, QD
     Route: 048
  10. VITAMIN D [Concomitant]
     Dosage: 1000 IU, QD
     Route: 048
  11. GRAPE SEED [Concomitant]
  12. GINGER [Concomitant]
  13. LEXAPRO [Concomitant]
     Dosage: 5 MG, QD
     Route: 048
  14. ALFALFA [Concomitant]
     Dosage: 8-9 A DAY
  15. VITAMIN B-12 [Concomitant]
     Dosage: 1000 MG, QD
     Route: 048
  16. CALCIUM W/MAGNESIUM [Concomitant]
     Dosage: 1500 MG, BID
     Route: 048
  17. COENZYME Q10 [Concomitant]
     Dosage: UNK, QD
     Route: 048

REACTIONS (3)
  - DEAFNESS UNILATERAL [None]
  - DIZZINESS [None]
  - TINNITUS [None]
